FAERS Safety Report 18733873 (Version 1)
Quarter: 2021Q1

REPORT INFORMATION
  Report Type: Spontaneous
  Country: US (occurrence: US)
  Receive Date: 20210113
  Receipt Date: 20210113
  Transmission Date: 20210419
  Serious: No
  Sender: FDA-Public Use
  Company Number: US-LUPIN PHARMACEUTICALS INC.-2021-00015

PATIENT
  Age: 54 Year
  Sex: Male

DRUGS (13)
  1. DAPTOMYCIN. [Suspect]
     Active Substance: DAPTOMYCIN
     Indication: EVIDENCE BASED TREATMENT
     Dosage: UNK
     Route: 065
  2. CEFTRIAXONE. [Suspect]
     Active Substance: CEFTRIAXONE
     Indication: STAPHYLOCOCCAL INFECTION
     Dosage: UNK
     Route: 065
  3. RIFAMPIN. [Interacting]
     Active Substance: RIFAMPIN
     Indication: STAPHYLOCOCCAL INFECTION
     Dosage: UNK
  4. VANCOMYCIN [Concomitant]
     Active Substance: VANCOMYCIN
     Indication: ARTHRITIS INFECTIVE
     Dosage: UNK
     Route: 065
  5. CEFTRIAXONE. [Suspect]
     Active Substance: CEFTRIAXONE
     Indication: ARTHRITIS INFECTIVE
  6. ANIDULAFUNGIN [Concomitant]
     Active Substance: ANIDULAFUNGIN
     Indication: EVIDENCE BASED TREATMENT
     Dosage: UNK
     Route: 065
  7. VANCOMYCIN [Concomitant]
     Active Substance: VANCOMYCIN
     Indication: STAPHYLOCOCCAL INFECTION
  8. CEFTRIAXONE. [Suspect]
     Active Substance: CEFTRIAXONE
     Indication: MORGANELLA INFECTION
  9. RIFAMPIN. [Interacting]
     Active Substance: RIFAMPIN
     Indication: ARTHRITIS INFECTIVE
  10. RIFAMPIN. [Interacting]
     Active Substance: RIFAMPIN
     Indication: MORGANELLA INFECTION
  11. APIXABAN [Interacting]
     Active Substance: APIXABAN
     Indication: DEEP VEIN THROMBOSIS
     Dosage: UNK
     Route: 065
  12. MEROPENEM. [Suspect]
     Active Substance: MEROPENEM
     Indication: EVIDENCE BASED TREATMENT
     Dosage: UNK
     Route: 065
  13. VANCOMYCIN [Concomitant]
     Active Substance: VANCOMYCIN
     Indication: MORGANELLA INFECTION

REACTIONS (2)
  - Drug interaction [Unknown]
  - Rash [Recovered/Resolved]
